FAERS Safety Report 6266580-9 (Version None)
Quarter: 2009Q3

REPORT INFORMATION
  Report Type: 
  Country: None (occurrence: None)
  Receive Date: 20090709
  Receipt Date: 20090625
  Transmission Date: 20100115
  Serious: Yes (Hospitalization)
  Sender: FDA-Public Use
  Company Number: 430031M09USA

PATIENT
  Age: 75 Year
  Sex: Male

DRUGS (9)
  1. NOVANTRONE [Suspect]
     Indication: PROSTATE CANCER METASTATIC
     Dosage: 26.5 MG, 1 IN 21 DAYS, INTRAVENOUS (NOT OTHERWISE SPECIFIED)
     Route: 042
     Dates: start: 20090313, end: 20090604
  2. CARVEDILOL [Concomitant]
  3. AMLOPIDINE (AMLODIPINE BESILATE) [Concomitant]
  4. HYDROCODONE (HYDROCODONE) [Concomitant]
  5. COUMADIN [Concomitant]
  6. PREDNISONE TAB [Concomitant]
  7. IRON (IRON) [Concomitant]
  8. POTASSIUM SUPPLEMENT (POTASSIUM) [Concomitant]
  9. WARFARIN SODIUM [Concomitant]

REACTIONS (9)
  - ANAEMIA [None]
  - ASTHENIA [None]
  - BACTERIAL INFECTION [None]
  - BLOOD CREATINE INCREASED [None]
  - BLOOD PRESSURE DIASTOLIC DECREASED [None]
  - BLOOD UREA INCREASED [None]
  - CLOSTRIDIAL INFECTION [None]
  - DIARRHOEA [None]
  - URINARY TRACT INFECTION [None]
